FAERS Safety Report 6048591-1 (Version None)
Quarter: 2009Q1

REPORT INFORMATION
  Report Type: 
  Country: None (occurrence: None)
  Receive Date: 20090123
  Receipt Date: 20090113
  Transmission Date: 20090719
  Serious: Yes (Hospitalization)
  Sender: FDA-Public Use
  Company Number: JP-ASTRAZENECA-2008SE04943

PATIENT
  Age: 82 Year
  Sex: Female
  Weight: 40 kg

DRUGS (9)
  1. BLOPRESS [Suspect]
     Indication: CARDIAC FAILURE CHRONIC
     Route: 048
     Dates: start: 20070601, end: 20070630
  2. LANIRAPID [Concomitant]
     Indication: CARDIAC FAILURE CHRONIC
     Route: 048
     Dates: end: 20070630
  3. LASIX [Concomitant]
     Indication: CARDIAC FAILURE CHRONIC
     Route: 048
     Dates: end: 20070630
  4. FERROMIA [Concomitant]
     Indication: ANAEMIA
     Route: 048
     Dates: end: 20070630
  5. ZANTAC [Concomitant]
     Indication: GASTRITIS
     Route: 048
     Dates: start: 20060827, end: 20070630
  6. CARBIDOPA + LEVODOPA [Concomitant]
     Indication: PARKINSON'S DISEASE
     Route: 048
     Dates: end: 20070630
  7. LENDORMIN [Concomitant]
     Indication: INSOMNIA
     Route: 048
     Dates: start: 20070501, end: 20070630
  8. VASOLAN [Concomitant]
     Indication: ATRIAL FIBRILLATION
     Route: 048
     Dates: start: 20070507, end: 20070630
  9. LOXONIN [Concomitant]
     Indication: BACK PAIN
     Route: 048
     Dates: start: 20070524, end: 20070630

REACTIONS (3)
  - BLOOD CREATININE INCREASED [None]
  - BLOOD UREA INCREASED [None]
  - CARDIAC FAILURE [None]
